FAERS Safety Report 13287453 (Version 1)
Quarter: 2017Q1

REPORT INFORMATION
  Report Type: Spontaneous
  Country: FR (occurrence: FR)
  Receive Date: 20170302
  Receipt Date: 20170302
  Transmission Date: 20170428
  Serious: Yes (Hospitalization)
  Sender: FDA-Public Use
  Company Number: FR-009507513-1702FRA012358

PATIENT
  Age: 42 Year
  Sex: Female

DRUGS (14)
  1. ADRIBLASTINE [Suspect]
     Active Substance: DOXORUBICIN
     Indication: SARCOMA
     Dosage: 115 MG, ONCE
     Route: 042
     Dates: start: 20170207, end: 20170209
  2. EMEND [Suspect]
     Active Substance: APREPITANT
     Dosage: UNK
     Route: 048
     Dates: start: 20170207, end: 20170209
  3. ZOPHREN (ONDANSETRON) [Suspect]
     Active Substance: ONDANSETRON
     Dosage: 8 MG, UNK
  4. SKENAN [Concomitant]
     Active Substance: MORPHINE SULFATE
     Dosage: 160 MG, BID
  5. LOVENOX [Concomitant]
     Active Substance: ENOXAPARIN SODIUM
     Dosage: 1 DF, QD
  6. TIMOLOL MALEATE. [Concomitant]
     Active Substance: TIMOLOL MALEATE
  7. UROMITEXAN [Suspect]
     Active Substance: MESNA
     Indication: CHEMOTHERAPY UROTHELIAL TOXICITY ATTENUATION
     Dosage: 6800 MG, QD
     Route: 042
     Dates: start: 20170208, end: 20170209
  8. ACTISKENAN [Concomitant]
     Active Substance: MORPHINE SULFATE
  9. CISPLATIN. [Suspect]
     Active Substance: CISPLATIN
     Indication: SARCOMA
     Dosage: 190 MG, ONCE
     Route: 042
     Dates: start: 20170207, end: 20170207
  10. SOLU-MEDROL [Suspect]
     Active Substance: METHYLPREDNISOLONE SODIUM SUCCINATE
     Dosage: 80 MG, QD
     Route: 051
     Dates: start: 20170207, end: 20170210
  11. IFOSFAMIDE. [Suspect]
     Active Substance: IFOSFAMIDE
     Indication: SARCOMA
     Dosage: 5700 MG, QD
     Route: 042
     Dates: start: 20170208, end: 20170209
  12. PLITICAN [Concomitant]
     Active Substance: ALIZAPRIDE HYDROCHLORIDE
     Dosage: 200 MG, QD
     Dates: start: 20170207, end: 20170210
  13. DOLIPRANE [Concomitant]
     Active Substance: ACETAMINOPHEN
     Dosage: 2 DF, QID
  14. LUTERAN [Concomitant]
     Active Substance: CHLORMADINONE ACETATE

REACTIONS (1)
  - Encephalopathy [Not Recovered/Not Resolved]

NARRATIVE: CASE EVENT DATE: 20170210
